FAERS Safety Report 6188360-5 (Version None)
Quarter: 2009Q2

REPORT INFORMATION
  Report Type: 
  Country: None (occurrence: None)
  Receive Date: 20090513
  Receipt Date: 20090506
  Transmission Date: 20091009
  Serious: Yes (Hospitalization, Disabling, Other)
  Sender: FDA-Public Use
  Company Number: DE-ASTRAZENECA-2009PK01234

PATIENT
  Sex: Female

DRUGS (1)
  1. ACERCOMP MITE [Suspect]
     Indication: HYPERTENSION
     Dosage: 10/12.5 MG
     Route: 048
     Dates: start: 19950201, end: 19950201

REACTIONS (3)
  - COMA [None]
  - HYPERSENSITIVITY [None]
  - PULMONARY OEDEMA [None]
